FAERS Safety Report 6820611-3 (Version None)
Quarter: 2010Q3

REPORT INFORMATION
  Report Type: 
  Country: None (occurrence: None)
  Receive Date: 20100707
  Receipt Date: 20100624
  Transmission Date: 20110219
  Serious: Yes (Death, Life-Threatening, Hospitalization)
  Sender: FDA-Public Use
  Company Number: JP-AMGEN-US403104

PATIENT
  Sex: Female
  Weight: 60 kg

DRUGS (12)
  1. ENBREL [Suspect]
     Indication: RHEUMATOID ARTHRITIS
     Route: 058
     Dates: start: 20100128, end: 20100318
  2. RHEUMATREX [Suspect]
     Indication: RHEUMATOID ARTHRITIS
     Route: 048
     Dates: start: 20080908
  3. PREDONINE [Suspect]
     Indication: RHEUMATOID ARTHRITIS
     Route: 048
     Dates: start: 20051201, end: 20100318
  4. AMLODIPINE [Concomitant]
     Indication: HYPERTENSION
     Route: 048
     Dates: start: 20080922
  5. NU-LOTAN [Concomitant]
     Indication: HYPERTENSION
     Route: 048
     Dates: start: 20080526
  6. DEXAMETHASONE PALMITATE [Concomitant]
     Indication: RHEUMATOID ARTHRITIS
     Route: 042
     Dates: start: 20100114
  7. LOXONIN [Concomitant]
     Indication: RHEUMATOID ARTHRITIS
     Route: 048
     Dates: start: 20080526
  8. MUCOSTA [Concomitant]
     Indication: GASTRITIS
     Route: 048
     Dates: start: 20080526
  9. GOSHAJINKIGAN [Concomitant]
     Indication: MYALGIA
     Route: 048
     Dates: start: 20080526
  10. FOSAMAX [Concomitant]
     Indication: OSTEOPOROSIS
     Route: 048
     Dates: start: 20080526
  11. SUNRYTHM [Concomitant]
     Indication: ATRIAL FIBRILLATION
     Route: 048
     Dates: start: 20090323
  12. OMEPRAL [Concomitant]
     Indication: GASTRIC ULCER
     Route: 048
     Dates: start: 20080525

REACTIONS (4)
  - OROPHARYNGEAL PAIN [None]
  - PLATELET COUNT DECREASED [None]
  - PNEUMONIA [None]
  - SEPSIS [None]
